FAERS Safety Report 8042302-6 (Version None)
Quarter: 2012Q1

REPORT INFORMATION
  Report Type: 
  Country: None (occurrence: None)
  Receive Date: 20120112
  Receipt Date: 20120103
  Transmission Date: 20120608
  Serious: Yes (Hospitalization)
  Sender: FDA-Public Use
  Company Number: US-ROCHE-1027312

PATIENT
  Age: 60 Year
  Sex: Female
  Weight: 79.45 kg

DRUGS (23)
  1. COPEGUS [Suspect]
     Indication: HEPATITIS C
     Route: 048
     Dates: start: 20100617, end: 20100701
  2. COPEGUS [Suspect]
     Route: 048
     Dates: start: 20100702, end: 20100716
  3. ACETAMINOPHEN W/ PROPOXYPHENE HCL [Concomitant]
     Indication: RENAL PAIN
     Dates: start: 19990101
  4. BLINDED ABT-072 (HCV NS5B INHIBITOR) [Suspect]
     Indication: HEPATITIS C
     Route: 048
     Dates: start: 20100614, end: 20100826
  5. PEGINTERFERON ALFA-2A [Suspect]
     Route: 058
     Dates: start: 20110102, end: 20110102
  6. BLINDED ABT-072 (HCV NS5B INHIBITOR) [Suspect]
     Route: 048
     Dates: start: 20100831, end: 20100906
  7. LISINOPRIL [Concomitant]
     Indication: HYPERTENSION
     Dates: start: 20060101
  8. SERTRALINE HYDROCHLORIDE [Concomitant]
     Indication: ANXIETY
     Dates: start: 20070101
  9. HYDROCHLOROTHIAZIDE [Concomitant]
     Indication: HYPERTENSION
     Dates: start: 20000101
  10. LOPERAMIDE HCL [Concomitant]
     Indication: DIARRHOEA
     Dates: start: 20000101
  11. LEVOTHYROXINE SODIUM [Concomitant]
     Route: 048
     Dates: start: 20101218
  12. HYDROCORTISONE ACETATE [Concomitant]
     Indication: HAEMORRHOIDS
     Dates: start: 20100722
  13. VICODIN [Concomitant]
     Indication: BACK PAIN
  14. ZOLPIDEM TARTRATE [Concomitant]
     Indication: INSOMNIA
     Dates: start: 20060101
  15. BYSTOLIC [Concomitant]
     Indication: HYPERTENSION
     Dates: start: 20080101
  16. VICODIN [Concomitant]
     Indication: NECK PAIN
     Dates: start: 20100807
  17. ACETAMINOPHEN W/ PROPOXYPHENE HCL [Concomitant]
     Indication: OSTEOARTHRITIS
  18. ALPRAZOLAM [Concomitant]
     Indication: ANXIETY
     Dates: start: 20100712
  19. PEGINTERFERON ALFA-2A [Suspect]
     Indication: HEPATITIS C
     Route: 058
     Dates: start: 20100617, end: 20101210
  20. COPEGUS [Suspect]
     Route: 048
     Dates: start: 20100717, end: 20101216
  21. LEVOTHYROXINE SODIUM [Concomitant]
     Indication: HYPERTHYROIDISM
     Dosage: 1.12/1.25 MCG
     Route: 048
     Dates: start: 19700101, end: 20101217
  22. GENTEAL LUBRICANT EYE DROPS [Concomitant]
     Dates: start: 20090101
  23. MILK THISTLE [Concomitant]
     Dates: start: 20070101

REACTIONS (4)
  - ABDOMINAL PAIN [None]
  - URINARY TRACT INFECTION [None]
  - HAEMOLYTIC ANAEMIA [None]
  - PNEUMONIA [None]
